FAERS Safety Report 15842163 (Version 1)
Quarter: 2019Q1

REPORT INFORMATION
  Report Type: Spontaneous
  Country: US (occurrence: US)
  Receive Date: 20190118
  Receipt Date: 20190118
  Transmission Date: 20190417
  Serious: Yes (Death, Hospitalization, Other)
  Sender: FDA-Public Use
  Company Number: US-APOTEX-2019AP006325

PATIENT
  Age: 12 Year
  Sex: Female

DRUGS (4)
  1. DIAZEPAM. [Suspect]
     Active Substance: DIAZEPAM
     Indication: PRODUCT USED FOR UNKNOWN INDICATION
     Route: 048
  2. LORAZEPAM. [Suspect]
     Active Substance: LORAZEPAM
     Indication: PRODUCT USED FOR UNKNOWN INDICATION
     Dosage: UNK
     Route: 048
  3. CITALOPRAM [Suspect]
     Active Substance: CITALOPRAM HYDROBROMIDE
     Indication: PRODUCT USED FOR UNKNOWN INDICATION
     Route: 048
  4. GABAPENTIN. [Suspect]
     Active Substance: GABAPENTIN
     Indication: PRODUCT USED FOR UNKNOWN INDICATION
     Route: 048

REACTIONS (16)
  - Respiratory failure [Fatal]
  - Pneumonia [Fatal]
  - Unresponsive to stimuli [Fatal]
  - Clonus [Fatal]
  - Death [Fatal]
  - Brain oedema [Fatal]
  - Pupillary reflex impaired [Fatal]
  - Pyrexia [Fatal]
  - Hypotension [Fatal]
  - Acute kidney injury [Fatal]
  - Oxygen consumption increased [Fatal]
  - Hypoxic-ischaemic encephalopathy [Fatal]
  - Brain herniation [Fatal]
  - Pulmonary oedema [Fatal]
  - Extrasystoles [Fatal]
  - Toxicity to various agents [Fatal]
